FAERS Safety Report 17745365 (Version 2)
Quarter: 2020Q4

REPORT INFORMATION
  Report Type: Report from Study
  Country: None (occurrence: US)
  Receive Date: 20200504
  Receipt Date: 20201103
  Transmission Date: 20210113
  Serious: Yes (Hospitalization, Other)
  Sender: FDA-Public Use
  Company Number: US-ABBVIE-20K-163-3388119-00

PATIENT
  Sex: Female

DRUGS (2)
  1. HUMIRA [Suspect]
     Active Substance: ADALIMUMAB
     Indication: HIDRADENITIS
     Route: 058
  2. HUMIRA [Suspect]
     Active Substance: ADALIMUMAB
     Route: 058

REACTIONS (7)
  - Pain [Unknown]
  - Hidradenitis [Not Recovered/Not Resolved]
  - Adhesion [Not Recovered/Not Resolved]
  - Hypertrophy [Unknown]
  - Groin pain [Unknown]
  - Stress [Unknown]
  - Therapeutic product effect incomplete [Not Recovered/Not Resolved]
